FAERS Safety Report 9256842 (Version 2)
Quarter: 2013Q3

REPORT INFORMATION
  Report Type: Spontaneous
  Country: US (occurrence: US)
  Receive Date: 20130426
  Receipt Date: 20130916
  Transmission Date: 20140515
  Serious: No
  Sender: FDA-Public Use
  Company Number: US-009507513-1304USA008130

PATIENT
  Sex: Male

DRUGS (16)
  1. VICTRELIS [Suspect]
     Indication: CHRONIC HEPATITIS C
     Dosage: 800 MG, TID
     Route: 048
     Dates: start: 20130412, end: 2013
  2. VICTRELIS [Suspect]
     Dosage: UNK
     Route: 048
     Dates: start: 2013
  3. PEGASYS [Suspect]
     Indication: CHRONIC HEPATITIS C
     Dosage: UNK
     Dates: start: 20130313
  4. RIBASPHERE [Suspect]
     Indication: CHRONIC HEPATITIS C
     Dosage: UNK
     Dates: start: 20130313
  5. CENTRUM (MINERALS (UNSPECIFIED) (+) VITAMINS (UNSPECIFIED)) [Concomitant]
     Dosage: UNK
  6. NORVASC [Concomitant]
     Dosage: UNK
  7. AVAPRO [Concomitant]
     Dosage: UNK
  8. SUCRALFATE [Concomitant]
     Dosage: UNK
  9. METFORMIN HYDROCHLORIDE [Concomitant]
     Dosage: UNK
  10. FENOFIBRATE [Concomitant]
  11. LOVAZA [Concomitant]
  12. METOPROLOL [Concomitant]
  13. OMEPRAZOLE [Concomitant]
  14. BAYER CHILDREN^S CHEWABLE ASPIRIN [Concomitant]
  15. XIFAXAN [Concomitant]
  16. CHOLECALCIFEROL [Concomitant]
     Dosage: 50,000 UNITS CAPSULES

REACTIONS (5)
  - Incorrect dose administered [Unknown]
  - Nausea [Unknown]
  - Asthenia [Unknown]
  - Red blood cell count decreased [Unknown]
  - Platelet count decreased [Unknown]
